FAERS Safety Report 4977479-X (Version None)
Quarter: 2006Q2

REPORT INFORMATION
  Report Type: 
  Country: None (occurrence: None)
  Receive Date: 20060420
  Receipt Date: 20060307
  Transmission Date: 20061013
  Serious: Yes (Hospitalization)
  Sender: FDA-Public Use
  Company Number: 2006AP01091

PATIENT
  Age: 57 Year
  Sex: Female

DRUGS (13)
  1. MEROPEN [Suspect]
     Route: 041
     Dates: start: 20050126, end: 20050127
  2. DIPRIVAN [Suspect]
     Indication: GENERAL ANAESTHESIA
     Dosage: 0-5 UG/ML
     Route: 042
     Dates: start: 20050126, end: 20050126
  3. XYLOCAINE [Suspect]
     Indication: EPIDURAL ANAESTHESIA
     Route: 008
     Dates: start: 20050126, end: 20050126
  4. MARCAINE [Suspect]
     Indication: EPIDURAL ANAESTHESIA
     Route: 008
     Dates: start: 20050126, end: 20050126
  5. ALTAT [Suspect]
     Indication: PREMEDICATION
     Route: 048
     Dates: start: 20050125, end: 20050126
  6. HORIZON [Suspect]
     Indication: PREMEDICATION
     Route: 048
     Dates: start: 20050125, end: 20050125
  7. FENTANEST [Suspect]
     Indication: ANALGESIC EFFECT
     Route: 042
     Dates: start: 20050126, end: 20050126
  8. DROLEPTAN [Suspect]
     Route: 042
     Dates: start: 20050126, end: 20050126
  9. IOPAMIRON 300 [Suspect]
     Route: 065
     Dates: start: 20050126, end: 20050126
  10. LEPETAN [Suspect]
     Indication: ANALGESIC EFFECT
     Route: 008
     Dates: start: 20050126, end: 20050126
  11. ADONA [Concomitant]
     Route: 042
     Dates: start: 20050126, end: 20050130
  12. TRANSAMIN [Concomitant]
     Route: 042
     Dates: start: 20050126, end: 20050130
  13. PRIMPERAN TAB [Concomitant]
     Route: 042
     Dates: start: 20050126, end: 20050130

REACTIONS (5)
  - ALANINE AMINOTRANSFERASE INCREASED [None]
  - ASPARTATE AMINOTRANSFERASE INCREASED [None]
  - DIZZINESS [None]
  - LIVER DISORDER [None]
  - NAUSEA [None]
